FAERS Safety Report 11365835 (Version 2)
Quarter: 2015Q4

REPORT INFORMATION
  Report Type: Spontaneous
  Country: US (occurrence: US)
  Receive Date: 20150811
  Receipt Date: 20151109
  Transmission Date: 20160304
  Serious: Yes (Other)
  Sender: FDA-Public Use
  Company Number: US-DSJP-DSU-2015-124863

PATIENT

DRUGS (4)
  1. TYLENOL [Concomitant]
     Active Substance: ACETAMINOPHEN
     Indication: PRODUCT USED FOR UNKNOWN INDICATION
     Dosage: UNK
  2. BENICAR HCT [Suspect]
     Active Substance: HYDROCHLOROTHIAZIDE\OLMESARTAN MEDOXOMIL
     Indication: HYPERTENSION
     Dosage: 20-12.5 MG ONE TABLET DAILY
     Route: 048
     Dates: start: 20060518
  3. BENICAR HCT [Suspect]
     Active Substance: HYDROCHLOROTHIAZIDE\OLMESARTAN MEDOXOMIL
     Dosage: 40-25MG
     Dates: start: 20060425, end: 20071228
  4. BENICAR [Suspect]
     Active Substance: OLMESARTAN MEDOXOMIL
     Indication: HYPERTENSION
     Dosage: 25 MG, QD
     Dates: start: 20060518, end: 20150209

REACTIONS (9)
  - Decreased appetite [Unknown]
  - Polyp [Recovered/Resolved]
  - Upper gastrointestinal haemorrhage [Unknown]
  - Chronic kidney disease [Unknown]
  - Gastritis [Unknown]
  - Malabsorption [Not Recovered/Not Resolved]
  - Renal failure [Unknown]
  - Peptic ulcer [Recovered/Resolved]
  - Colitis ulcerative [Unknown]

NARRATIVE: CASE EVENT DATE: 2006
